FAERS Safety Report 8088341-0 (Version None)
Quarter: 2012Q1

REPORT INFORMATION
  Report Type: 
  Country: None (occurrence: None)
  Receive Date: 20120128
  Receipt Date: 20110523
  Transmission Date: 20120608
  Serious: No
  Sender: FDA-Public Use
  Company Number: US-ABBOTT-11P-163-0727758-00

PATIENT
  Age: 46 Year
  Sex: Male

DRUGS (5)
  1. ASACOL [Concomitant]
     Indication: CROHN'S DISEASE
  2. CELEXA [Concomitant]
     Indication: DEPRESSION
  3. IMURAN [Concomitant]
     Indication: CROHN'S DISEASE
  4. CRESTOR [Concomitant]
     Indication: BLOOD CHOLESTEROL INCREASED
  5. HUMIRA [Suspect]
     Indication: CROHN'S DISEASE
     Dates: start: 20100801

REACTIONS (2)
  - MOBILITY DECREASED [None]
  - ASTHENIA [None]
